FAERS Safety Report 6265844-2 (Version None)
Quarter: 2009Q3

REPORT INFORMATION
  Report Type: 
  Country: None (occurrence: None)
  Receive Date: 20090713
  Receipt Date: 20090708
  Transmission Date: 20100115
  Serious: Yes (Hospitalization)
  Sender: FDA-Public Use
  Company Number: B0582765A

PATIENT
  Sex: Male

DRUGS (3)
  1. AUGMENTIN '125' [Suspect]
     Dosage: 1G TWICE PER DAY
     Route: 048
     Dates: start: 20081213, end: 20081216
  2. VANCOMYCIN [Concomitant]
     Dosage: 1G PER DAY
     Route: 042
  3. TAVANIC [Concomitant]
     Dosage: 500MG PER DAY
     Route: 048
     Dates: start: 20081215, end: 20081215

REACTIONS (5)
  - ECZEMA [None]
  - PRURITUS [None]
  - RASH [None]
  - SKIN EXFOLIATION [None]
  - URTICARIA [None]
